FAERS Safety Report 4537239-0 (Version None)
Quarter: 2004Q4

REPORT INFORMATION
  Report Type: 
  Country: None (occurrence: None)
  Receive Date: 20041221
  Receipt Date: 20041213
  Transmission Date: 20050328
  Serious: Yes (Other)
  Sender: FDA-Public Use
  Company Number: 235993K04USA

PATIENT
  Age: 57 Year
  Sex: Female

DRUGS (5)
  1. REBIF [Suspect]
     Indication: MULTIPLE SCLEROSIS
     Dosage: 44 MCG, 3 IN 1 WEEKS, SUBCUTANEOUS
     Route: 058
     Dates: start: 20021211
  2. TRILEPTAL [Concomitant]
  3. AMANTADINE (AMANTADINE) [Concomitant]
  4. AMBIEN [Concomitant]
  5. LEXAPRO [Concomitant]

REACTIONS (6)
  - CONDITION AGGRAVATED [None]
  - CONVULSION [None]
  - EPILEPSY [None]
  - INCREASED TENDENCY TO BRUISE [None]
  - RASH ERYTHEMATOUS [None]
  - SYNCOPE [None]
